FAERS Safety Report 11366038 (Version 1)
Quarter: 2015Q3

REPORT INFORMATION
  Report Type: Spontaneous
  Country: JP (occurrence: JP)
  Receive Date: 20150811
  Receipt Date: 20150811
  Transmission Date: 20151125
  Serious: Yes (Hospitalization)
  Sender: FDA-Public Use
  Company Number: JP-BAYER-2015-391414

PATIENT
  Age: 67 Year
  Sex: Male
  Weight: 59 kg

DRUGS (3)
  1. AVELOX [Suspect]
     Active Substance: MOXIFLOXACIN HYDROCHLORIDE
     Indication: PYREXIA
     Dosage: 400 MG, QD
     Route: 048
     Dates: start: 20150417, end: 20150419
  2. AVELOX [Suspect]
     Active Substance: MOXIFLOXACIN HYDROCHLORIDE
     Indication: PYREXIA
     Dosage: UNK
  3. CRIZOTINIB [Suspect]
     Active Substance: CRIZOTINIB
     Indication: SMALL CELL LUNG CANCER
     Dosage: 250 MG, QD
     Route: 048
     Dates: start: 20150403, end: 20150420

REACTIONS (1)
  - Interstitial lung disease [None]

NARRATIVE: CASE EVENT DATE: 20150417
